FAERS Safety Report 18243713 (Version 1)
Quarter: 2020Q3

REPORT INFORMATION
  Report Type: Spontaneous
  Country: US (occurrence: US)
  Receive Date: 20200908
  Receipt Date: 20200908
  Transmission Date: 20201103
  Serious: Yes (Hospitalization, Other)
  Sender: FDA-Public Use
  Company Number: US-SA-2020SA240645

PATIENT

DRUGS (1)
  1. ALDURAZYME [Suspect]
     Active Substance: LARONIDASE
     Indication: MUCOPOLYSACCHARIDOSIS I

REACTIONS (4)
  - Cardiac arrest [Not Recovered/Not Resolved]
  - Post procedural sepsis [Not Recovered/Not Resolved]
  - Bone marrow transplant [Not Recovered/Not Resolved]
  - Off label use [Unknown]
